FAERS Safety Report 9889715 (Version 2)
Quarter: 2014Q1

REPORT INFORMATION
  Report Type: Spontaneous
  Country: US (occurrence: US)
  Receive Date: 20140211
  Receipt Date: 20140211
  Transmission Date: 20141002
  Serious: No
  Sender: FDA-Public Use
  Company Number: US-PFIZER INC-2013085174

PATIENT
  Age: 67 Year
  Sex: Female

DRUGS (10)
  1. LYRICA [Suspect]
     Indication: PAIN
     Dosage: 75 MG, 2X/DAY
  2. METFORMIN HYDROCHLORIDE [Concomitant]
     Dosage: 500 MG, 1 TABLET BID FOR 90 DAYS
     Route: 048
     Dates: start: 20120503
  3. HYDROCODONE W/ACETAMINOPHEN [Concomitant]
     Dosage: (10- 325 MG) 1 TABLET, EVERY FOUR HOURS, AS NEEDED
     Route: 048
     Dates: start: 20120730
  4. ZOFRAN [Concomitant]
     Dosage: 4 MG, 1 TABLET THREE TIMES DALLY, AS NEEDED
     Route: 048
     Dates: start: 20120927
  5. AMBIEN [Concomitant]
     Dosage: 5 MG, 1 TABLET BEDTIME PRN
     Route: 048
     Dates: start: 20120927
  6. ULTRAM [Concomitant]
     Indication: PAIN
     Dosage: 50 MG, 1 (ONE) TABLET QID PRN
     Dates: start: 20120925
  7. LASIX [Concomitant]
     Dosage: 40 MG, 1 TABLET, QD, PRN
     Route: 048
     Dates: start: 20120730
  8. ALBUTEROL SULFATE [Concomitant]
     Dosage: (5 MG/ML) 0.5 % NEBULIZED SOLN (INHALATION) QID/PRN
     Route: 055
     Dates: start: 20110525
  9. PREDNISONE [Concomitant]
     Dosage: 20 MG, DAILY
     Route: 048
  10. SOTALOL HYDROCHLORIDE (AF) [Concomitant]
     Dosage: 80 MG, 2X/DAY
     Route: 048

REACTIONS (2)
  - Pain in extremity [Unknown]
  - Pain [Unknown]
